FAERS Safety Report 15544344 (Version 2)
Quarter: 2019Q3

REPORT INFORMATION
  Report Type: Spontaneous
  Country: CA (occurrence: CA)
  Receive Date: 20181024
  Receipt Date: 20190722
  Transmission Date: 20191004
  Serious: Yes (Life-Threatening, Hospitalization, Other)
  Sender: FDA-Public Use
  Company Number: CA-TEVA-2018-CA-964571

PATIENT
  Age: 66 Year
  Sex: Male
  Weight: 61 kg

DRUGS (9)
  1. RAMIPRIL. [Concomitant]
     Active Substance: RAMIPRIL
  2. ATORVASTATIN CALCIUM. [Suspect]
     Active Substance: ATORVASTATIN CALCIUM
     Indication: CARDIOVASCULAR EVENT PROPHYLAXIS
     Dosage: 80 MILLIGRAM DAILY;
     Route: 048
  3. EPCLUSA [Interacting]
     Active Substance: SOFOSBUVIR\VELPATASVIR
     Route: 048
  4. PLAVIX [Concomitant]
     Active Substance: CLOPIDOGREL BISULFATE
  5. ASA [Concomitant]
     Active Substance: ASPIRIN
  6. LASIX [Concomitant]
     Active Substance: FUROSEMIDE
  7. CLOPIDOGREL [Concomitant]
     Active Substance: CLOPIDOGREL BISULFATE
  8. SPIRONOLACTONE. [Concomitant]
     Active Substance: SPIRONOLACTONE
  9. METOPROLOL. [Concomitant]
     Active Substance: METOPROLOL

REACTIONS (19)
  - Blood lactic acid increased [Recovering/Resolving]
  - Blood urea abnormal [Recovering/Resolving]
  - Potentiating drug interaction [Recovering/Resolving]
  - Troponin increased [Recovering/Resolving]
  - Alanine aminotransferase increased [Recovering/Resolving]
  - Blood creatinine abnormal [Recovering/Resolving]
  - Blood potassium abnormal [Recovering/Resolving]
  - International normalised ratio abnormal [Recovering/Resolving]
  - Muscular weakness [Recovering/Resolving]
  - Glomerular filtration rate decreased [Recovering/Resolving]
  - Pain [Recovering/Resolving]
  - Aspartate aminotransferase increased [Recovering/Resolving]
  - Blood albumin abnormal [Recovering/Resolving]
  - Chromaturia [Recovering/Resolving]
  - Pyrexia [Recovering/Resolving]
  - Blood creatine phosphokinase abnormal [Recovering/Resolving]
  - Myalgia [Recovering/Resolving]
  - Nausea [Recovering/Resolving]
  - Vomiting [Recovering/Resolving]
